FAERS Safety Report 4370571-2 (Version None)
Quarter: 2004Q2

REPORT INFORMATION
  Report Type: 
  Country: None (occurrence: None)
  Receive Date: 20040603
  Receipt Date: 20040401
  Transmission Date: 20050107
  Serious: Yes (Hospitalization, Other)
  Sender: FDA-Public Use
  Company Number: US-MERCK-0404USA00145

PATIENT
  Age: 57 Year
  Sex: Male
  Weight: 89 kg

DRUGS (4)
  1. CODEINE [Concomitant]
     Indication: HAEMORRHOIDS
     Route: 065
  2. CODEINE [Concomitant]
     Indication: VARICOSE VEIN
     Route: 065
  3. VIOXX [Suspect]
     Indication: PAIN
     Route: 048
     Dates: start: 20040320, end: 20040321
  4. VITAMINS (UNSPECIFIED) [Concomitant]
     Route: 065

REACTIONS (12)
  - BLOOD PRESSURE ABNORMAL [None]
  - CALCINOSIS [None]
  - CEREBROVASCULAR DISORDER [None]
  - HAEMANGIOMA [None]
  - HYPOAESTHESIA [None]
  - MIGRAINE [None]
  - NUCLEAR MAGNETIC RESONANCE IMAGING BRAIN ABNORMAL [None]
  - PARAESTHESIA [None]
  - SENSORY LEVEL ABNORMAL [None]
  - SIMPLE PARTIAL SEIZURES [None]
  - STRESS SYMPTOMS [None]
  - TRANSIENT ISCHAEMIC ATTACK [None]
